FAERS Safety Report 26109635 (Version 2)
Quarter: 2025Q4

REPORT INFORMATION
  Report Type: Report from Study
  Country: EU (occurrence: EU)
  Receive Date: 20251201
  Receipt Date: 20251210
  Transmission Date: 20260118
  Serious: Yes (Other)
  Sender: MYLAN
  Company Number: EU-GRUNENTHAL-2025-124763

PATIENT
  Age: 46 Year
  Sex: Female

DRUGS (8)
  1. TRAMADOL [Suspect]
     Active Substance: TRAMADOL
     Indication: Product used for unknown indication
     Dosage: UNK UNK, 1 PRN (AS NEEDED)
  2. TRAMADOL [Suspect]
     Active Substance: TRAMADOL
     Dosage: UNK UNK, 1 PRN (AS NEEDED)
     Route: 065
  3. TRAMADOL [Suspect]
     Active Substance: TRAMADOL
     Dosage: UNK UNK, 1 PRN (AS NEEDED)
     Route: 065
  4. TRAMADOL [Suspect]
     Active Substance: TRAMADOL
     Dosage: UNK UNK, 1 PRN (AS NEEDED)
  5. QUTENZA [Suspect]
     Active Substance: CAPSAICIN
     Indication: Procedural pain
     Dosage: 1 DOSAGE FORM, TOTAL
     Dates: start: 20250908, end: 20250908
  6. QUTENZA [Suspect]
     Active Substance: CAPSAICIN
     Dosage: 1 DOSAGE FORM, TOTAL
     Route: 003
     Dates: start: 20250908, end: 20250908
  7. QUTENZA [Suspect]
     Active Substance: CAPSAICIN
     Dosage: 1 DOSAGE FORM, TOTAL
     Route: 003
     Dates: start: 20250908, end: 20250908
  8. QUTENZA [Suspect]
     Active Substance: CAPSAICIN
     Dosage: 1 DOSAGE FORM, TOTAL
     Dates: start: 20250908, end: 20250908

REACTIONS (4)
  - Drug ineffective [Unknown]
  - Application site pain [Recovered/Resolved]
  - Application site erythema [Recovered/Resolved]
  - Application site swelling [Recovered/Resolved]

NARRATIVE: CASE EVENT DATE: 20250908
